FAERS Safety Report 12726362 (Version 5)
Quarter: 2017Q1

REPORT INFORMATION
  Report Type: Report from Study
  Country: DE (occurrence: DE)
  Receive Date: 20160908
  Receipt Date: 20170324
  Transmission Date: 20170428
  Serious: Yes (Hospitalization)
  Sender: FDA-Public Use
  Company Number: DE-SA-2016SA162367

PATIENT
  Age: 37 Year
  Sex: Female
  Weight: 60 kg

DRUGS (4)
  1. BISOPROLOL [Concomitant]
     Active Substance: BISOPROLOL
     Route: 048
  2. HUMALOG [Concomitant]
     Active Substance: INSULIN LISPRO
     Indication: TYPE 1 DIABETES MELLITUS
     Dosage: AS REQUIRED
     Route: 058
     Dates: start: 19960501
  3. LEMTRADA [Suspect]
     Active Substance: ALEMTUZUMAB
     Indication: MULTIPLE SCLEROSIS
     Route: 041
     Dates: start: 20160321, end: 20160325
  4. LEVEMIR [Concomitant]
     Active Substance: INSULIN DETEMIR
     Indication: TYPE 1 DIABETES MELLITUS
     Dosage: AS REQUIRED
     Route: 058
     Dates: start: 20120101

REACTIONS (11)
  - Nasopharyngitis [Recovered/Resolved]
  - Coronary artery insufficiency [Unknown]
  - Balance disorder [Not Recovered/Not Resolved]
  - Chest injury [Recovering/Resolving]
  - Musculoskeletal chest pain [Recovering/Resolving]
  - Blood test abnormal [Recovered/Resolved]
  - Nasopharyngitis [Recovered/Resolved]
  - Inflammation [Recovered/Resolved]
  - Supraventricular tachycardia [Unknown]
  - Bradycardia [Recovered/Resolved]
  - Insomnia [Recovered/Resolved]

NARRATIVE: CASE EVENT DATE: 20160321
